FAERS Safety Report 24591489 (Version 1)
Quarter: 2024Q4

REPORT INFORMATION
  Report Type: Spontaneous
  Country: FR (occurrence: FR)
  Receive Date: 20241108
  Receipt Date: 20241108
  Transmission Date: 20250115
  Serious: Yes (Other)
  Sender: AUROBINDO
  Company Number: FR-AFSSAPS-AVCN2024000790

PATIENT
  Age: 36 Year
  Sex: Male

DRUGS (6)
  1. QUETIAPINE [Suspect]
     Active Substance: QUETIAPINE
     Indication: Product used for unknown indication
     Dosage: UNK
     Route: 048
     Dates: start: 20241013, end: 20241013
  2. COCAINE [Suspect]
     Active Substance: COCAINE
     Indication: Product used for unknown indication
     Dosage: 2 GRAM
  3. COCAINE [Suspect]
     Active Substance: COCAINE
     Dosage: 2 GRAM
     Dates: start: 20241013, end: 20241013
  4. VALIUM [Suspect]
     Active Substance: DIAZEPAM
     Indication: Product used for unknown indication
     Dosage: UNK
     Route: 048
     Dates: start: 20241013, end: 20241013
  5. ALCOHOL [Suspect]
     Active Substance: ALCOHOL
     Indication: Product used for unknown indication
     Dosage: UNK
     Route: 048
  6. ALCOHOL [Suspect]
     Active Substance: ALCOHOL
     Dosage: UNK
     Route: 048
     Dates: start: 20241013, end: 20241013

REACTIONS (7)
  - Suicidal ideation [Unknown]
  - Blood creatine phosphokinase increased [Recovering/Resolving]
  - Somnolence [Recovered/Resolved]
  - Tachycardia [Recovered/Resolved]
  - Alcohol poisoning [Recovered/Resolved]
  - Toxicity to various agents [Recovered/Resolved]
  - Drug abuse [Not Recovered/Not Resolved]

NARRATIVE: CASE EVENT DATE: 20241013
